FAERS Safety Report 10867222 (Version 1)
Quarter: 2015Q1

REPORT INFORMATION
  Report Type: Spontaneous
  Country: IT (occurrence: IT)
  Receive Date: 20150225
  Receipt Date: 20150225
  Transmission Date: 20150721
  Serious: Yes (Hospitalization)
  Sender: FDA-Public Use
  Company Number: IT-BRISTOL-MYERS SQUIBB COMPANY-BMS-2015-009489

PATIENT

DRUGS (2)
  1. CATAPRESAN                         /00171101/ [Concomitant]
     Active Substance: CLONIDINE
     Indication: HYPERTENSION
     Dosage: 1 UNIT, UNK
     Route: 062
  2. COUMADIN [Suspect]
     Active Substance: WARFARIN SODIUM
     Indication: THROMBOSIS PROPHYLAXIS
     Dosage: 1 UNIT, PRN
     Route: 048
     Dates: start: 20080106, end: 20150106

REACTIONS (6)
  - Anaemia [Recovering/Resolving]
  - Fall [Recovering/Resolving]
  - Joint injury [Recovered/Resolved]
  - Ecchymosis [Recovering/Resolving]
  - International normalised ratio increased [Recovering/Resolving]
  - Oedema peripheral [Recovering/Resolving]

NARRATIVE: CASE EVENT DATE: 20150106
